FAERS Safety Report 10730497 (Version 1)
Quarter: 2015Q1

REPORT INFORMATION
  Report Type: Spontaneous
  Country: US (occurrence: None)
  Receive Date: 20150120
  Receipt Date: 20150120
  Transmission Date: 20150721
  Serious: Yes (Disabling)
  Sender: FDA-Public Use
  Company Number: None

PATIENT
  Age: 31 Year
  Sex: Male
  Weight: 73.03 kg

DRUGS (1)
  1. FINASTERIDE. [Suspect]
     Active Substance: FINASTERIDE
     Indication: ANDROGENETIC ALOPECIA
     Dosage: 1 PILL
     Route: 048
     Dates: start: 20120105, end: 20130705

REACTIONS (4)
  - Sexual dysfunction [None]
  - Hormone level abnormal [None]
  - Feeling abnormal [None]
  - Libido decreased [None]

NARRATIVE: CASE EVENT DATE: 20120105
